FAERS Safety Report 10064233 (Version 1)
Quarter: 2014Q2

REPORT INFORMATION
  Report Type: Spontaneous
  Country: US (occurrence: US)
  Receive Date: 20140408
  Receipt Date: 20140408
  Transmission Date: 20141212
  Serious: Yes (Other)
  Sender: FDA-Public Use
  Company Number: US-RANBAXY-2014US-79725

PATIENT
  Sex: Female

DRUGS (1)
  1. ABSORICA [Suspect]
     Indication: ACNE
     Dosage: UNK
     Route: 065
     Dates: start: 20140228

REACTIONS (2)
  - Nightmare [Unknown]
  - Hallucination [Unknown]
